FAERS Safety Report 9130204 (Version 1)
Quarter: 2013Q1

REPORT INFORMATION
  Report Type: Spontaneous
  Country: US (occurrence: US)
  Receive Date: 20130228
  Receipt Date: 20130228
  Transmission Date: 20140127
  Serious: Yes (Death)
  Sender: FDA-Public Use
  Company Number: US-CELGENEUS-163-21880-13023816

PATIENT
  Sex: Female

DRUGS (1)
  1. REVLIMID [Suspect]
     Indication: HODGKIN^S DISEASE
     Dosage: 5 MILLIGRAM
     Route: 048
     Dates: start: 201004

REACTIONS (1)
  - Hodgkin^s disease [Fatal]
